FAERS Safety Report 16691835 (Version 2)
Quarter: 2019Q3

REPORT INFORMATION
  Report Type: Spontaneous
  Country: US (occurrence: US)
  Receive Date: 20190812
  Receipt Date: 20190903
  Transmission Date: 20191004
  Serious: Yes (Hospitalization)
  Sender: FDA-Public Use
  Company Number: US-BAYER-2019-148184

PATIENT
  Age: 83 Year
  Sex: Female
  Weight: 68.49 kg

DRUGS (8)
  1. GADAVIST [Suspect]
     Active Substance: GADOBUTROL
     Indication: NUCLEAR MAGNETIC RESONANCE IMAGING BRAIN
     Dosage: 7.0 ML, ONCE
     Route: 042
     Dates: start: 20190807, end: 20190807
  2. LORAZEPAM. [Concomitant]
     Active Substance: LORAZEPAM
  3. BIOTIN [Concomitant]
     Active Substance: BIOTIN
  4. CENTRUM [MINERALS NOS;VITAMINS NOS] [Concomitant]
  5. OMEPRAZOLE. [Concomitant]
     Active Substance: OMEPRAZOLE
  6. GLUCOSAMINE [Concomitant]
     Active Substance: GLUCOSAMINE
  7. GADAVIST [Suspect]
     Active Substance: GADOBUTROL
     Indication: HEADACHE
  8. CHOLECALCIFEROL [Concomitant]
     Active Substance: CHOLECALCIFEROL

REACTIONS (4)
  - Throat irritation [Not Recovered/Not Resolved]
  - Cough [Not Recovered/Not Resolved]
  - Chest discomfort [Not Recovered/Not Resolved]
  - Urticaria [Not Recovered/Not Resolved]

NARRATIVE: CASE EVENT DATE: 20190807
